FAERS Safety Report 21672000 (Version 1)
Quarter: 2022Q4

REPORT INFORMATION
  Report Type: Spontaneous
  Country: US (occurrence: US)
  Receive Date: 20221202
  Receipt Date: 20221202
  Transmission Date: 20230112
  Serious: No
  Sender: FDA-Public Use
  Company Number: US-ABBVIE-4215352

PATIENT
  Age: 14 Year
  Sex: Female
  Weight: 24.95 kg

DRUGS (4)
  1. HUMIRA [Suspect]
     Active Substance: ADALIMUMAB
     Indication: Crohn^s disease
     Dosage: FORM STRENGTH: 80 MILLIGRAM
     Route: 058
     Dates: start: 20221123
  2. EPINEPHRINE [Concomitant]
     Active Substance: EPINEPHRINE
     Indication: Anaphylactic shock
     Dosage: DOSAGE FORM: PEN
  3. FLUVOXAMINE [Concomitant]
     Active Substance: FLUVOXAMINE
     Indication: Obsessive-compulsive disorder
  4. ZYRTEC [Concomitant]
     Active Substance: CETIRIZINE HYDROCHLORIDE
     Indication: Hypersensitivity

REACTIONS (3)
  - Panic attack [Recovered/Resolved]
  - Wrong technique in product usage process [Not Recovered/Not Resolved]
  - Incorrect dose administered [Not Recovered/Not Resolved]

NARRATIVE: CASE EVENT DATE: 20221123
